FAERS Safety Report 4532332-0 (Version None)
Quarter: 2004Q4

REPORT INFORMATION
  Report Type: 
  Country: None (occurrence: None)
  Receive Date: 20041217
  Receipt Date: 20041202
  Transmission Date: 20050328
  Serious: Yes (Hospitalization, Disabling)
  Sender: FDA-Public Use
  Company Number: 2004090133

PATIENT
  Age: 57 Year
  Sex: Male
  Weight: 95.2554 kg

DRUGS (2)
  1. NARDIL [Suspect]
     Indication: DEPRESSION
     Dosage: 45 MG (15 MG), ORAL
     Route: 048
  2. CLONAZEPAM [Concomitant]

REACTIONS (14)
  - ANXIETY [None]
  - DEPRESSED MOOD [None]
  - DIABETES MELLITUS [None]
  - DRUG INEFFECTIVE [None]
  - FEELING ABNORMAL [None]
  - LOSS OF EMPLOYMENT [None]
  - MAJOR DEPRESSION [None]
  - MALAISE [None]
  - MEDICATION ERROR [None]
  - MENTAL IMPAIRMENT [None]
  - NERVOUS SYSTEM DISORDER [None]
  - PHARMACEUTICAL PRODUCT COMPLAINT [None]
  - SUICIDAL IDEATION [None]
  - TEARFULNESS [None]
